FAERS Safety Report 11438750 (Version 1)
Quarter: 2015Q3

REPORT INFORMATION
  Report Type: Spontaneous
  Country: US (occurrence: US)
  Receive Date: 20150901
  Receipt Date: 20150901
  Transmission Date: 20151125
  Serious: No
  Sender: FDA-Public Use
  Company Number: US-ROCHE-1160342

PATIENT
  Sex: Male

DRUGS (3)
  1. RIBAVIRIN. [Concomitant]
     Active Substance: RIBAVIRIN
     Route: 065
     Dates: start: 201209
  2. PEGASYS [Suspect]
     Active Substance: PEGINTERFERON ALFA-2A
     Indication: PRODUCT USED FOR UNKNOWN INDICATION
     Route: 065
     Dates: start: 201209
  3. VICTRELIS [Concomitant]
     Active Substance: BOCEPREVIR

REACTIONS (6)
  - Unevaluable event [Unknown]
  - Weight increased [Unknown]
  - Oral discomfort [Unknown]
  - Depression [Unknown]
  - Hypophagia [Unknown]
  - Irritability [Unknown]
